FAERS Safety Report 6534833-2 (Version None)
Quarter: 2010Q1

REPORT INFORMATION
  Report Type: 
  Country: None (occurrence: None)
  Receive Date: 20100112
  Receipt Date: 20091229
  Transmission Date: 20100710
  Serious: Yes (Other)
  Sender: FDA-Public Use
  Company Number: US-MYLANLABS-2009S1022075

PATIENT
  Age: 18 Year

DRUGS (2)
  1. VALPROATE SODIUM [Suspect]
     Indication: CONVULSION
     Dosage: DOSAGE NOT STATED
  2. LEVETIRACETAM [Suspect]
     Indication: CONVULSION
     Dosage: DOSAGE NOT STATED

REACTIONS (3)
  - CONVULSION [None]
  - DRUG INEFFECTIVE [None]
  - IRON OVERLOAD [None]
